FAERS Safety Report 7790954-8 (Version None)
Quarter: 2011Q3

REPORT INFORMATION
  Report Type: 
  Country: None (occurrence: None)
  Receive Date: 20110930
  Receipt Date: 20110930
  Transmission Date: 20111222
  Serious: Yes (Other)
  Sender: FDA-Public Use
  Company Number: None

PATIENT
  Age: 45 Year
  Sex: Female
  Weight: 122.46 kg

DRUGS (1)
  1. BETASERON [Suspect]
     Indication: MULTIPLE SCLEROSIS
     Dosage: 1.0 ML AFTER 7 WK TITRATION
     Route: 058
     Dates: start: 20100219, end: 20100430

REACTIONS (4)
  - BLOOD IRON INCREASED [None]
  - INJECTION SITE NECROSIS [None]
  - SERUM FERRITIN INCREASED [None]
  - CONTUSION [None]
